FAERS Safety Report 18472601 (Version 1)
Quarter: 2020Q4

REPORT INFORMATION
  Report Type: Spontaneous
  Country: JP (occurrence: JP)
  Receive Date: 20201106
  Receipt Date: 20201106
  Transmission Date: 20210114
  Serious: Yes (Life-Threatening, Hospitalization)
  Sender: FDA-Public Use
  Company Number: JP-MYLANLABS-2020M1091997

PATIENT
  Age: 32 Year
  Sex: Female
  Weight: 38.6 kg

DRUGS (6)
  1. MITOXANTRONE [Suspect]
     Active Substance: MITOXANTRONE HYDROCHLORIDE
     Indication: ACUTE MYELOID LEUKAEMIA
     Route: 065
  2. CYCLOPHOSPHAMIDE. [Suspect]
     Active Substance: CYCLOPHOSPHAMIDE
     Indication: METASTASES TO LYMPH NODES
     Dosage: 800 MILLIGRAM/SQ. METER, ADMINISTERED 4 COURSES
     Route: 065
  3. EPIRUBICIN [Suspect]
     Active Substance: EPIRUBICIN
     Indication: METASTASES TO LYMPH NODES
     Dosage: 120 MILLIGRAM/SQ. METER, ADMINISTERED 4 COURSES
     Route: 065
  4. DAUNORUBICIN [Suspect]
     Active Substance: DAUNORUBICIN
     Indication: ACUTE MYELOID LEUKAEMIA
     Route: 065
  5. TRASTUZUMAB. [Suspect]
     Active Substance: TRASTUZUMAB
     Indication: METASTASES TO LYMPH NODES
     Route: 065
  6. ACLARUBICIN [Suspect]
     Active Substance: ACLARUBICIN
     Indication: ACUTE MYELOID LEUKAEMIA
     Route: 065

REACTIONS (8)
  - Hepatic failure [Unknown]
  - Subarachnoid haemorrhage [Unknown]
  - Cardiomyopathy [Recovering/Resolving]
  - Myocardial fibrosis [Unknown]
  - Pleural effusion [Unknown]
  - Cerebral infarction [Unknown]
  - Carotid artery occlusion [Unknown]
  - Cardiac failure [Recovering/Resolving]
